FAERS Safety Report 6730221-4 (Version None)
Quarter: 2010Q2

REPORT INFORMATION
  Report Type: 
  Country: None (occurrence: None)
  Receive Date: 20100513
  Receipt Date: 20100429
  Transmission Date: 20101027
  Serious: Yes (Hospitalization)
  Sender: FDA-Public Use
  Company Number: 011196

PATIENT
  Sex: Female

DRUGS (2)
  1. CIMZIA [Suspect]
     Indication: CROHN'S DISEASE
     Dosage: (400 MG 1X/2 WEEKS, TEMPORARILY WITHDRAWN SUBCUTANEOUS)
     Route: 058
     Dates: start: 20090626, end: 20100201
  2. PERCOCET-5 [Concomitant]

REACTIONS (1)
  - HERNIA [None]
